FAERS Safety Report 4634605-X (Version None)
Quarter: 2005Q2

REPORT INFORMATION
  Report Type: 
  Country: None (occurrence: None)
  Receive Date: 20050413
  Receipt Date: 20050330
  Transmission Date: 20051028
  Serious: Yes (Hospitalization)
  Sender: FDA-Public Use
  Company Number: ED02-002-3750

PATIENT
  Age: 94 Year
  Sex: Female

DRUGS (4)
  1. DONEPEZIL HCL [Suspect]
     Indication: DEMENTIA
     Dosage: 10 MG, 1 IN 1 D, ORAL
     Route: 048
     Dates: start: 20020124, end: 20020528
  2. DOXEPIN HCL [Concomitant]
  3. EDRONAX (REBOXETINE) [Concomitant]
  4. GINKOBIL (GINKGO TREE LEAVES EXTRACT) [Concomitant]

REACTIONS (3)
  - DELIRIUM [None]
  - NAUSEA [None]
  - VOMITING [None]
